FAERS Safety Report 7857227-6 (Version None)
Quarter: 2011Q4

REPORT INFORMATION
  Report Type: 
  Country: None (occurrence: None)
  Receive Date: 20111027
  Receipt Date: 20111018
  Transmission Date: 20120403
  Serious: Yes (Hospitalization)
  Sender: FDA-Public Use
  Company Number: US-BIOGENIDEC-2011BI035010

PATIENT
  Age: 35 Year
  Sex: Female

DRUGS (7)
  1. AVONEX [Concomitant]
     Indication: MULTIPLE SCLEROSIS
  2. LOPRESSOR [Concomitant]
     Indication: HEART RATE DECREASED
     Dates: start: 20110901
  3. TYSABRI [Suspect]
     Indication: MULTIPLE SCLEROSIS
     Route: 042
     Dates: start: 20081201
  4. AVONEX [Concomitant]
     Dates: start: 19990901, end: 20030116
  5. PLAVIX [Concomitant]
     Indication: ANTICOAGULANT THERAPY
     Dates: start: 20110901
  6. ASPIRIN [Concomitant]
     Indication: ANTICOAGULANT THERAPY
     Dates: start: 20110901
  7. LIPITOR [Concomitant]
     Indication: BLOOD CHOLESTEROL
     Dates: start: 20110901

REACTIONS (2)
  - CORONARY ARTERY DISSECTION [None]
  - WHITE BLOOD CELL COUNT INCREASED [None]
